FAERS Safety Report 18519246 (Version 1)
Quarter: 2020Q4

REPORT INFORMATION
  Report Type: Spontaneous
  Country: US (occurrence: US)
  Receive Date: 20201118
  Receipt Date: 20201118
  Transmission Date: 20210114
  Serious: No
  Sender: FDA-Public Use
  Company Number: US-BAUSCH-BL-2020-031986

PATIENT
  Age: 75 Year
  Sex: Male

DRUGS (3)
  1. BESIVANCE [Suspect]
     Active Substance: BESIFLOXACIN
     Indication: OFF LABEL USE
  2. BESIVANCE [Suspect]
     Active Substance: BESIFLOXACIN
     Indication: PREOPERATIVE CARE
     Dosage: 1 DROP IN THE LEFT EYE 5 MINUTES APART
     Route: 047
     Dates: start: 20201029, end: 20201029
  3. PROLENSA [Suspect]
     Active Substance: BROMFENAC SODIUM
     Indication: PREOPERATIVE CARE
     Dosage: 1 DROP IN THE LEFT EYE 5 MINUTES APART
     Route: 047
     Dates: start: 20201029, end: 20201029

REACTIONS (3)
  - Eye irritation [Recovered/Resolved]
  - Product use in unapproved indication [Unknown]
  - Product prescribing error [Unknown]

NARRATIVE: CASE EVENT DATE: 20201029
